FAERS Safety Report 4613315-9 (Version None)
Quarter: 2005Q1

REPORT INFORMATION
  Report Type: 
  Country: None (occurrence: None)
  Receive Date: 20050315
  Receipt Date: 20050228
  Transmission Date: 20050727
  Serious: Yes (Hospitalization)
  Sender: FDA-Public Use
  Company Number: 2004BI001272

PATIENT
  Age: 39 Year
  Sex: Female
  Weight: 60 kg

DRUGS (3)
  1. AVONEX [Suspect]
     Indication: MULTIPLE SCLEROSIS
     Dosage: 30 UG;QW;IM
     Route: 030
     Dates: start: 20030501
  2. ARLEVERT [Concomitant]
  3. MINISISTON [Concomitant]

REACTIONS (4)
  - CHILLS [None]
  - CHOLELITHIASIS [None]
  - NAUSEA [None]
  - POST PROCEDURAL COMPLICATION [None]
